FAERS Safety Report 15849960 (Version 1)
Quarter: 2019Q1

REPORT INFORMATION
  Report Type: Spontaneous
  Country: US (occurrence: US)
  Receive Date: 20190121
  Receipt Date: 20190121
  Transmission Date: 20190417
  Serious: Yes (Disabling)
  Sender: FDA-Public Use
  Company Number: US-SA-2019SA011750

PATIENT
  Age: 60 Year
  Sex: Female

DRUGS (2)
  1. BIOTIN [Concomitant]
     Active Substance: BIOTIN
  2. AUBAGIO [Suspect]
     Active Substance: TERIFLUNOMIDE
     Indication: MULTIPLE SCLEROSIS
     Dosage: 14 MG, QD
     Route: 048
     Dates: start: 20180821

REACTIONS (5)
  - Gait disturbance [Unknown]
  - Alopecia [Unknown]
  - Pain [Unknown]
  - Fatigue [Unknown]
  - Loss of personal independence in daily activities [Unknown]
